FAERS Safety Report 21839662 (Version 1)
Quarter: 2023Q1

REPORT INFORMATION
  Report Type: Report from Study
  Country: US (occurrence: US)
  Receive Date: 20230109
  Receipt Date: 20230109
  Transmission Date: 20230417
  Serious: Yes (Other)
  Sender: FDA-Public Use
  Company Number: US-ABBVIE-4261940

PATIENT
  Sex: Male

DRUGS (1)
  1. RINVOQ [Suspect]
     Active Substance: UPADACITINIB
     Indication: Product used for unknown indication
     Route: 048
     Dates: start: 20221207, end: 20221221

REACTIONS (3)
  - Colectomy total [Not Recovered/Not Resolved]
  - Ileostomy [Not Recovered/Not Resolved]
  - Drug ineffective [Not Recovered/Not Resolved]
